FAERS Safety Report 23742761 (Version 3)
Quarter: 2024Q2

REPORT INFORMATION
  Report Type: Report from Study
  Country: US (occurrence: US)
  Receive Date: 20240415
  Receipt Date: 20240507
  Transmission Date: 20240717
  Serious: Yes (Hospitalization, Other)
  Sender: FDA-Public Use
  Company Number: US-INSMED, INC.-2024-01312-US

PATIENT
  Sex: Male

DRUGS (7)
  1. ARIKAYCE [Suspect]
     Active Substance: AMIKACIN
     Indication: Mycobacterium avium complex infection
     Dosage: 590 MILLIGRAM, QD
     Route: 055
     Dates: start: 20240327, end: 2024
  2. ARIKAYCE [Suspect]
     Active Substance: AMIKACIN
     Dosage: 590 MILLIGRAM, QD
     Route: 055
     Dates: start: 2024, end: 20240408
  3. ALBUTEROL [Suspect]
     Active Substance: ALBUTEROL
     Indication: Product used for unknown indication
     Dosage: UNK, UNK
     Route: 055
  4. FORMOTEROL [Suspect]
     Active Substance: FORMOTEROL
     Indication: Product used for unknown indication
     Dosage: UNK, UNK
     Route: 055
  5. ETHAMBUTOL [Suspect]
     Active Substance: ETHAMBUTOL HYDROCHLORIDE
     Indication: Product used for unknown indication
     Dosage: UNK, UNK
     Route: 065
  6. OXYGEN [Concomitant]
     Active Substance: OXYGEN
     Indication: Product used for unknown indication
     Dosage: UNK, UNK
     Route: 065
  7. TAMSULOISIN [Concomitant]
     Indication: Product used for unknown indication
     Dosage: UNK, UNK
     Route: 065

REACTIONS (21)
  - Oxygen saturation decreased [Unknown]
  - Small cell lung cancer [Not Recovered/Not Resolved]
  - Pneumonia [Unknown]
  - Lung disorder [Not Recovered/Not Resolved]
  - Oxygen saturation abnormal [Not Recovered/Not Resolved]
  - Panic attack [Recovering/Resolving]
  - Feeling jittery [Not Recovered/Not Resolved]
  - Visual impairment [Unknown]
  - Nocturia [Unknown]
  - Hospice care [Unknown]
  - Insomnia [Not Recovered/Not Resolved]
  - Sputum increased [Not Recovered/Not Resolved]
  - Anxiety [Not Recovered/Not Resolved]
  - Cough [Recovered/Resolved]
  - Chest discomfort [Unknown]
  - Malaise [Unknown]
  - Productive cough [Unknown]
  - Fatigue [Not Recovered/Not Resolved]
  - Dyspnoea [Recovered/Resolved]
  - Dyspnoea [Not Recovered/Not Resolved]
  - Therapy interrupted [Unknown]

NARRATIVE: CASE EVENT DATE: 20240101
